FAERS Safety Report 6658235-3 (Version None)
Quarter: 2010Q1

REPORT INFORMATION
  Report Type: 
  Country: None (occurrence: None)
  Receive Date: 20100330
  Receipt Date: 20100224
  Transmission Date: 20100710
  Serious: No
  Sender: FDA-Public Use
  Company Number: US-BIOGENIDEC-2010BI006562

PATIENT
  Sex: Female

DRUGS (2)
  1. TYSABRI [Suspect]
     Indication: MULTIPLE SCLEROSIS
     Route: 042
     Dates: start: 20091027
  2. BOTOX [Concomitant]

REACTIONS (5)
  - HEADACHE [None]
  - NECK PAIN [None]
  - ORGASM ABNORMAL [None]
  - PAIN [None]
  - ROAD TRAFFIC ACCIDENT [None]
